FAERS Safety Report 26114795 (Version 1)
Quarter: 2025Q4

REPORT INFORMATION
  Report Type: Report from Study
  Country: CO (occurrence: CO)
  Receive Date: 20251203
  Receipt Date: 20251203
  Transmission Date: 20260117
  Serious: Yes (Death, Hospitalization, Other)
  Sender: GLAXOSMITHKLINE
  Company Number: CO-GSK-CO2025AMR105728

PATIENT
  Sex: Female

DRUGS (1)
  1. NIRAPARIB [Suspect]
     Active Substance: NIRAPARIB
     Indication: Ovarian cancer
     Dosage: 200 MG, QD

REACTIONS (9)
  - Death [Fatal]
  - Dyskinesia [Recovered/Resolved]
  - Hypoaesthesia [Recovered/Resolved]
  - Head discomfort [Recovered/Resolved]
  - Tension headache [Not Recovered/Not Resolved]
  - Mass [Recovered/Resolved]
  - Metastasis [Unknown]
  - Insomnia [Not Recovered/Not Resolved]
  - Constipation [Not Recovered/Not Resolved]

NARRATIVE: CASE EVENT DATE: 20251020
